FAERS Safety Report 4505620-1 (Version None)
Quarter: 2004Q4

REPORT INFORMATION
  Report Type: 
  Country: None (occurrence: None)
  Receive Date: 20041119
  Receipt Date: 20040831
  Transmission Date: 20050328
  Serious: Yes (Hospitalization, Disabling, Other)
  Sender: FDA-Public Use
  Company Number: JP-MERCK-0409USA00160

PATIENT
  Age: 75 Year
  Sex: Female
  Weight: 50 kg

DRUGS (4)
  1. ZOCOR [Suspect]
     Indication: HYPERLIPIDAEMIA
     Route: 048
     Dates: start: 19940517, end: 19961001
  2. ZOCOR [Suspect]
     Route: 048
     Dates: start: 19970922, end: 20040715
  3. GLYBURIDE [Concomitant]
     Indication: DIABETES MELLITUS
     Route: 048
     Dates: start: 19971201, end: 20040715
  4. ARICEPT [Concomitant]
     Indication: DEMENTIA ALZHEIMER'S TYPE
     Route: 048
     Dates: start: 19971201, end: 20040715

REACTIONS (13)
  - ABDOMINAL PAIN [None]
  - BLOOD GLUCOSE INCREASED [None]
  - BLOOD UREA INCREASED [None]
  - CHROMATURIA [None]
  - DECUBITUS ULCER [None]
  - DEHYDRATION [None]
  - DISSEMINATED INTRAVASCULAR COAGULATION [None]
  - MOVEMENT DISORDER [None]
  - NASOPHARYNGITIS [None]
  - PLATELET COUNT ABNORMAL [None]
  - PYREXIA [None]
  - RHABDOMYOLYSIS [None]
  - URINE OUTPUT DECREASED [None]
